FAERS Safety Report 17036964 (Version 1)
Quarter: 2019Q4

REPORT INFORMATION
  Report Type: Spontaneous
  Country: CN (occurrence: CN)
  Receive Date: 20191115
  Receipt Date: 20191115
  Transmission Date: 20200122
  Serious: Yes (Death, Congenital Anomaly, Other)
  Sender: FDA-Public Use
  Company Number: CN-AMNEAL PHARMACEUTICALS-2019-AMRX-02715

PATIENT

DRUGS (1)
  1. ALBENZA [Suspect]
     Active Substance: ALBENDAZOLE
     Indication: HELMINTHIC INFECTION
     Dosage: 2 DOSAGE FORM Z (WEEK AGO)
     Route: 064

REACTIONS (2)
  - Foetal heart rate abnormal [Fatal]
  - Foetal exposure during pregnancy [Unknown]
